FAERS Safety Report 23783883 (Version 2)
Quarter: 2024Q2

REPORT INFORMATION
  Report Type: Report from Study
  Country: CA (occurrence: None)
  Receive Date: 20240425
  Receipt Date: 20240426
  Transmission Date: 20240716
  Serious: Yes (Hospitalization)
  Sender: FDA-Public Use
  Company Number: 2024A096561

PATIENT
  Age: 31528 Day
  Sex: Female

DRUGS (22)
  1. FASENRA [Suspect]
     Active Substance: BENRALIZUMAB
     Indication: Asthma
     Route: 058
     Dates: start: 20230118
  2. BRITANOL [Concomitant]
     Dates: start: 2020
  3. ARNUITY ELLIPTA [Concomitant]
     Active Substance: FLUTICASONE FUROATE
     Dosage: 100MG 1 PUFF DAILY
     Dates: start: 2022
  4. TRELEGY ELLIPTA [Concomitant]
     Active Substance: FLUTICASONE FUROATE\UMECLIDINIUM BROMIDE\VILANTEROL TRIFENATATE
     Dosage: 108MG 1 PUFF DAILY
     Dates: start: 2022
  5. SINGULAIR [Concomitant]
     Active Substance: MONTELUKAST SODIUM
     Dosage: 10MG ONCE DAILY
     Dates: start: 2020
  6. PANTOPRAZOLE [Concomitant]
     Active Substance: PANTOPRAZOLE
     Route: 048
  7. XARELTO [Concomitant]
     Active Substance: RIVAROXABAN
     Route: 048
  8. MONTELUKAST [Concomitant]
     Active Substance: MONTELUKAST SODIUM
     Route: 048
  9. MOMETASONE [Concomitant]
     Active Substance: MOMETASONE
  10. HYDROCORTISONE/CLOTRIMAZOLE [Concomitant]
  11. BRICANYL [Concomitant]
     Active Substance: TERBUTALINE SULFATE
  12. TYLENOL [Concomitant]
     Active Substance: ACETAMINOPHEN
  13. GLUCOSAMINE [Concomitant]
     Active Substance: GLUCOSAMINE
  14. PROBIOTICS NOS [Concomitant]
     Active Substance: PROBIOTICS NOS
  15. VITAMIN D3 [Concomitant]
     Active Substance: CHOLECALCIFEROL
  16. CALCIUM [Concomitant]
     Active Substance: CALCIUM
  17. MELATONIN [Concomitant]
     Active Substance: MELATONIN
  18. PREDNISONE [Concomitant]
     Active Substance: PREDNISONE
  19. LAMOTRIGINE [Concomitant]
     Active Substance: LAMOTRIGINE
  20. METOPROLOL [Concomitant]
     Active Substance: METOPROLOL
  21. AMLODIPINE [Concomitant]
     Active Substance: AMLODIPINE BESYLATE
  22. VALSARTAN [Concomitant]
     Active Substance: VALSARTAN

REACTIONS (3)
  - Hypoaesthesia [Recovering/Resolving]
  - Facial paralysis [Recovering/Resolving]
  - Partial seizures [Recovering/Resolving]

NARRATIVE: CASE EVENT DATE: 20240324
